FAERS Safety Report 17879405 (Version 2)
Quarter: 2020Q2

REPORT INFORMATION
  Report Type: Spontaneous
  Country: FR (occurrence: FR)
  Receive Date: 20200610
  Receipt Date: 20200618
  Transmission Date: 20200714
  Serious: Yes (Other)
  Sender: FDA-Public Use
  Company Number: NVSC2020FR160973

PATIENT
  Age: 65 Year
  Sex: Female
  Weight: 61.2 kg

DRUGS (3)
  1. ESTRADIOL. [Suspect]
     Active Substance: ESTRADIOL
     Indication: MENOPAUSE
     Dosage: UNK
     Route: 062
  2. ANDROCUR [Suspect]
     Active Substance: CYPROTERONE ACETATE
     Indication: MENOPAUSE
     Dosage: UNK,INCONNUE
     Route: 048
     Dates: end: 2018
  3. SYSTEN [Suspect]
     Active Substance: ESTRADIOL
     Indication: MENOPAUSE
     Route: 065

REACTIONS (1)
  - Meningioma [Not Recovered/Not Resolved]

NARRATIVE: CASE EVENT DATE: 201906
